FAERS Safety Report 22298068 (Version 1)
Quarter: 2023Q2

REPORT INFORMATION
  Report Type: Report from Study
  Country: HN (occurrence: HN)
  Receive Date: 20230509
  Receipt Date: 20230509
  Transmission Date: 20230721
  Serious: Yes (Hospitalization)
  Sender: FDA-Public Use
  Company Number: HN-MYLANLABS-2023M1048297

PATIENT
  Sex: Male
  Weight: 63.5 kg

DRUGS (1)
  1. LIPITOR [Suspect]
     Active Substance: ATORVASTATIN CALCIUM
     Indication: Diabetic neuropathy
     Dosage: 40 MILLIGRAM, QD (ONE TABLET DAILY)
     Route: 048
     Dates: start: 2022

REACTIONS (2)
  - Dysstasia [Not Recovered/Not Resolved]
  - Off label use [Not Recovered/Not Resolved]

NARRATIVE: CASE EVENT DATE: 20220101
